FAERS Safety Report 6432574-3 (Version None)
Quarter: 2009Q4

REPORT INFORMATION
  Report Type: 
  Country: None (occurrence: None)
  Receive Date: 20091109
  Receipt Date: 20091027
  Transmission Date: 20100525
  Serious: Yes (Hospitalization)
  Sender: FDA-Public Use
  Company Number: US-ELI_LILLY_AND_COMPANY-US200908004737

PATIENT
  Age: 61 Year
  Sex: Female

DRUGS (5)
  1. ZYPREXA [Suspect]
     Indication: BIPOLAR I DISORDER
     Dosage: 20 MG, EACH EVENING
  2. ZYPREXA [Suspect]
     Dosage: 10 MG, UNK
  3. LITHIUM CARBONATE [Concomitant]
     Dosage: 450 MG, UNK
  4. LITHIUM CARBONATE [Concomitant]
     Dosage: 900 MG, UNK
  5. SYNTHROID [Concomitant]
     Dosage: 100 UG, UNK

REACTIONS (2)
  - DRUG INTERACTION [None]
  - NEUROLEPTIC MALIGNANT SYNDROME [None]
